FAERS Safety Report 19908003 (Version 4)
Quarter: 2021Q4

REPORT INFORMATION
  Report Type: Report from Study
  Country: US (occurrence: US)
  Receive Date: 20210930
  Receipt Date: 20211215
  Transmission Date: 20220303
  Serious: No
  Sender: FDA-Public Use
  Company Number: NVSC2021US219588

PATIENT
  Sex: Female
  Weight: 77.11 kg

DRUGS (3)
  1. TREPROSTINIL [Suspect]
     Active Substance: TREPROSTINIL
     Indication: Pulmonary arterial hypertension
     Dosage: 58 (NG/KG/MIN, CONTINUOUS)
     Route: 058
     Dates: start: 20210721
  2. NIFEDIPINE [Concomitant]
     Active Substance: NIFEDIPINE
     Indication: Product used for unknown indication
     Dosage: UNK
     Route: 065
  3. DILTIAZEM [Concomitant]
     Active Substance: DILTIAZEM
     Indication: Product used for unknown indication
     Dosage: UNK
     Route: 065

REACTIONS (7)
  - Therapeutic response unexpected [Unknown]
  - Fall [Unknown]
  - Abdominal discomfort [Unknown]
  - Injection site pain [Unknown]
  - Diarrhoea [Unknown]
  - Infusion site erythema [Unknown]
  - Pain in extremity [Unknown]
